FAERS Safety Report 5605908-7 (Version None)
Quarter: 2008Q1

REPORT INFORMATION
  Report Type: 
  Country: None (occurrence: None)
  Receive Date: 20080124
  Receipt Date: 20080124
  Transmission Date: 20080703
  Serious: No
  Sender: FDA-Public Use
  Company Number: None

PATIENT
  Age: 47 Year
  Sex: Female
  Weight: 70.3075 kg

DRUGS (2)
  1. ASACOL [Suspect]
     Indication: COLITIS
     Dosage: 800MG TID PO
     Route: 048
  2. ASACOL [Suspect]
     Indication: ILEITIS
     Dosage: 800MG TID PO
     Route: 048

REACTIONS (1)
  - VAGINAL DISCHARGE [None]
